FAERS Safety Report 11969784 (Version 2)
Quarter: 2016Q2

REPORT INFORMATION
  Report Type: Spontaneous
  Country: AU (occurrence: AU)
  Receive Date: 20160128
  Receipt Date: 20160428
  Transmission Date: 20160815
  Serious: Yes (Disabling)
  Sender: FDA-Public Use
  Company Number: AU-009507513-1601AUS005043

PATIENT
  Age: 66 Year
  Sex: Female

DRUGS (14)
  1. VYTORIN [Suspect]
     Active Substance: EZETIMIBE\SIMVASTATIN
     Dosage: 1 DF, QD
     Route: 048
     Dates: start: 20151123, end: 20151226
  2. VAGIFEM [Concomitant]
     Active Substance: ESTRADIOL
     Dosage: TWICE WEEKLY AS DIRECTED
     Route: 067
  3. MEGAFOL [Concomitant]
     Active Substance: FOLIC ACID
     Dosage: 2 WEEKLY
     Route: 048
  4. VYTORIN [Suspect]
     Active Substance: EZETIMIBE\SIMVASTATIN
     Dosage: 1 DAILY
     Route: 048
     Dates: start: 20141015, end: 20151105
  5. CRESTOR [Concomitant]
     Active Substance: ROSUVASTATIN CALCIUM
     Dosage: 1 AT NIGHT
     Route: 048
  6. MAXOLON [Concomitant]
     Active Substance: METOCLOPRAMIDE HYDROCHLORIDE
     Indication: NAUSEA
     Dosage: 1 TABLET 3 TIMES A DAY IF REQUIRED FOR NAUSEA
     Route: 048
  7. DITROPAN [Concomitant]
     Active Substance: OXYBUTYNIN CHLORIDE
     Dosage: 1 BD
     Route: 048
  8. PANADOL [Concomitant]
     Active Substance: ACETAMINOPHEN
     Dosage: 2 TWICE A DAY IF REQUIRED
     Route: 048
  9. VALIUM [Concomitant]
     Active Substance: DIAZEPAM
     Dosage: 0.5 TABLET AT NIGHT IF REQUIRED
     Route: 048
  10. STEMETIL (PROCHLORPERAZINE MALEATE) [Concomitant]
     Indication: VERTIGO
     Dosage: 1 TABLET 3 TIMES A DAY IF REQUIRED FOR VERTIGO
     Route: 048
  11. ALDACTONE [Concomitant]
     Active Substance: SPIRONOLACTONE
     Dosage: 0.5 TABLET DAILY
     Route: 048
  12. METHOTREXATE (METHOTREXATE SODIUM) [Concomitant]
     Active Substance: METHOTREXATE SODIUM
     Dosage: 1 WEEKLY
     Route: 048
  13. AVAPRO [Concomitant]
     Active Substance: IRBESARTAN
     Dosage: 1 DAILY
     Route: 048
  14. FLAREX [Concomitant]
     Active Substance: FLUOROMETHOLONE ACETATE
     Dosage: 1 DROP LEFT EYE DAILY
     Route: 047

REACTIONS (2)
  - Cough [Recovered/Resolved]
  - Cough [Recovered/Resolved]

NARRATIVE: CASE EVENT DATE: 20151015
